FAERS Safety Report 22205259 (Version 1)
Quarter: 2023Q2

REPORT INFORMATION
  Report Type: Spontaneous
  Country: US (occurrence: US)
  Receive Date: 20230413
  Receipt Date: 20230413
  Transmission Date: 20230722
  Serious: No
  Sender: FDA-Public Use
  Company Number: US-GSKCCFUS-Case-01670521_AE-94267

PATIENT
  Sex: Male

DRUGS (1)
  1. ANORO ELLIPTA [Suspect]
     Active Substance: UMECLIDINIUM BROMIDE\VILANTEROL TRIFENATATE
     Indication: Product used for unknown indication
     Dosage: UNK, QD(62.5/25 MCG )
     Route: 055
     Dates: start: 202208, end: 202209

REACTIONS (4)
  - Dyspnoea [Unknown]
  - Therapy cessation [Unknown]
  - Device use error [Unknown]
  - Inappropriate schedule of product administration [Unknown]
